FAERS Safety Report 20479830 (Version 1)
Quarter: 2022Q1

REPORT INFORMATION
  Report Type: Spontaneous
  Country: US (occurrence: None)
  Receive Date: 20220215
  Receipt Date: 20220215
  Transmission Date: 20220423
  Serious: No
  Sender: FDA-Public Use
  Company Number: None

PATIENT
  Age: 56 Year
  Sex: Female
  Weight: 73.8 kg

DRUGS (10)
  1. BUPROPION HYDROCHLORIDE [Suspect]
     Active Substance: BUPROPION HYDROCHLORIDE
     Indication: Depression
     Dosage: OTHER QUANTITY : 1 TABLET(S);?
     Route: 048
  2. BUPROPION [Concomitant]
     Active Substance: BUPROPION
  3. RAMIPRIL [Concomitant]
     Active Substance: RAMIPRIL
  4. SYNTHROID [Concomitant]
     Active Substance: LEVOTHYROXINE SODIUM
  5. CYMBALTA [Concomitant]
     Active Substance: DULOXETINE HYDROCHLORIDE
  6. HUMALOG [Concomitant]
     Active Substance: INSULIN LISPRO
  7. MEDTRONIC INSULIN [Concomitant]
  8. BLACK COHOSH [Concomitant]
  9. VITAMIN D3 [Concomitant]
     Active Substance: CHOLECALCIFEROL
  10. ACETAMINOPHEN [Concomitant]
     Active Substance: ACETAMINOPHEN

REACTIONS (6)
  - Product substitution issue [None]
  - Depression [None]
  - Crying [None]
  - Flat affect [None]
  - Intrusive thoughts [None]
  - Asthenia [None]

NARRATIVE: CASE EVENT DATE: 20211205
